FAERS Safety Report 9366302 (Version 1)
Quarter: 2013Q2

REPORT INFORMATION
  Report Type: Spontaneous
  Country: KR (occurrence: KR)
  Receive Date: 20130625
  Receipt Date: 20130625
  Transmission Date: 20140414
  Serious: Yes (Other)
  Sender: FDA-Public Use
  Company Number: KR-JNJFOC-20130609739

PATIENT
  Sex: 0

DRUGS (1)
  1. ABCIXIMAB [Suspect]
     Indication: CORONARY ARTERY RESTENOSIS
     Route: 065

REACTIONS (3)
  - Cardiac disorder [Unknown]
  - Vascular operation [Unknown]
  - Hyperplasia [Unknown]
